FAERS Safety Report 13725680 (Version 1)
Quarter: 2020Q3

REPORT INFORMATION
  Report Type: Report from Study
  Country: GR (occurrence: GR)
  Receive Date: 20170707
  Receipt Date: 20170707
  Transmission Date: 20201105
  Serious: Yes (Other)
  Sender: FDA-Public Use
  Company Number: GR-ROCHE-1926084

PATIENT

DRUGS (1)
  1. IBANDRONIC ACID. [Suspect]
     Active Substance: IBANDRONIC ACID
     Indication: METASTASES TO BONE
     Dosage: 10 CYCLES; 60 MINUTES INFUSION
     Route: 042

REACTIONS (1)
  - Pathological fracture [Unknown]
